FAERS Safety Report 5290522-6 (Version None)
Quarter: 2007Q2

REPORT INFORMATION
  Report Type: 
  Country: None (occurrence: None)
  Receive Date: 20070409
  Receipt Date: 20070330
  Transmission Date: 20071010
  Serious: Yes (Other)
  Sender: FDA-Public Use
  Company Number: 2007UW06506

PATIENT
  Age: 54 Year
  Sex: Female

DRUGS (5)
  1. SEROQUEL [Suspect]
     Indication: BIPOLAR DISORDER
     Route: 048
  2. SEROQUEL [Suspect]
     Route: 048
  3. TRICOR [Concomitant]
  4. AMBIEN CR [Concomitant]
  5. METFORMIN HCL [Concomitant]

REACTIONS (5)
  - GLOSSODYNIA [None]
  - MUSCULOSKELETAL STIFFNESS [None]
  - TONGUE BLISTERING [None]
  - TONGUE DISORDER [None]
  - TONGUE PARALYSIS [None]
